FAERS Safety Report 5961981-8 (Version None)
Quarter: 2008Q4

REPORT INFORMATION
  Report Type: 
  Country: None (occurrence: None)
  Receive Date: 20081121
  Receipt Date: 20081110
  Transmission Date: 20090506
  Serious: Yes (Death, Other)
  Sender: FDA-Public Use
  Company Number: PHHY2008SE28098

PATIENT
  Sex: Male

DRUGS (2)
  1. ZOMETA [Suspect]
     Indication: PROSTATE CANCER
     Dosage: UNK
     Dates: start: 20050501, end: 20050501
  2. ZOMETA [Suspect]
     Indication: METASTASES TO BONE

REACTIONS (4)
  - BEDRIDDEN [None]
  - DEATH [None]
  - INFLUENZA LIKE ILLNESS [None]
  - PAIN [None]
